FAERS Safety Report 8327540-7 (Version None)
Quarter: 2012Q2

REPORT INFORMATION
  Report Type: 
  Country: None (occurrence: None)
  Receive Date: 20120502
  Receipt Date: 20120126
  Transmission Date: 20120825
  Serious: Yes (Other)
  Sender: FDA-Public Use
  Company Number: JP-BAYER-201015400BYL

PATIENT
  Sex: Male

DRUGS (1)
  1. NEXAVAR [Suspect]

REACTIONS (1)
  - ADVERSE EVENT [None]
